FAERS Safety Report 7023712-2 (Version None)
Quarter: 2010Q4

REPORT INFORMATION
  Report Type: 
  Country: None (occurrence: None)
  Receive Date: 20101001
  Receipt Date: 20100923
  Transmission Date: 20110411
  Serious: Yes (Other)
  Sender: FDA-Public Use
  Company Number: FR-KINGPHARMUSA00001-K201001203

PATIENT
  Age: 49 Year
  Sex: Female

DRUGS (5)
  1. ALTACE [Suspect]
     Indication: BLOOD PRESSURE ABNORMAL
     Dosage: UNK
  2. AMISULPRIDE [Suspect]
     Indication: SCHIZOPHRENIA
     Dosage: UNK
  3. LAMOTRIGINE [Suspect]
     Indication: SCHIZOPHRENIA
     Dosage: UNK
  4. PAROXETINE HCL [Suspect]
     Indication: DEPRESSION
     Dosage: UNK
  5. CLOZARIL [Suspect]
     Indication: SCHIZOPHRENIA
     Dosage: UNK
     Route: 048
     Dates: start: 20050207

REACTIONS (2)
  - BREAST ABSCESS [None]
  - BREAST CANCER [None]
